FAERS Safety Report 8511344-6 (Version None)
Quarter: 2012Q3

REPORT INFORMATION
  Report Type: 
  Country: None (occurrence: None)
  Receive Date: 20120716
  Receipt Date: 20120706
  Transmission Date: 20120928
  Serious: Yes (Other)
  Sender: FDA-Public Use
  Company Number: US-ASTELLAS-2012US006043

PATIENT
  Age: 59 Year
  Sex: Female

DRUGS (5)
  1. PREDNISONE [Concomitant]
     Indication: RENAL TRANSPLANT
     Dosage: 10 MG, UID/QD
     Route: 065
     Dates: end: 20100101
  2. PROGRAF [Suspect]
     Indication: RENAL TRANSPLANT
     Dosage: 1 MG, BID
     Route: 065
     Dates: end: 20100101
  3. PREDNISONE [Concomitant]
     Dosage: 5 MG, UID/QD
     Route: 065
     Dates: start: 20100101
  4. PROGRAF [Suspect]
     Dosage: 2 MG, BID
     Route: 065
     Dates: start: 20100101, end: 20100101
  5. MYCOPHENOLIC ACID [Concomitant]
     Indication: RENAL TRANSPLANT
     Dosage: 720 MG, BID
     Route: 065

REACTIONS (1)
  - POST TRANSPLANT DISTAL LIMB SYNDROME [None]
